FAERS Safety Report 9252917 (Version 2)
Quarter: 2013Q2

REPORT INFORMATION
  Report Type: Spontaneous
  Country: NO (occurrence: NO)
  Receive Date: 20130424
  Receipt Date: 20130513
  Transmission Date: 20140414
  Serious: Yes (Other)
  Sender: FDA-Public Use
  Company Number: NO-ASTRAZENECA-2013SE28107

PATIENT
  Age: 44 Year
  Sex: Female

DRUGS (9)
  1. QUETIAPINE FUMARATE [Suspect]
     Indication: SCHIZOAFFECTIVE DISORDER
     Route: 048
  2. QUETIAPINE FUMARATE [Suspect]
     Indication: SCHIZOAFFECTIVE DISORDER
     Route: 048
  3. CLOZAPINE [Suspect]
     Indication: SCHIZOAFFECTIVE DISORDER
     Route: 065
  4. ZIPRASIDONE HCL [Suspect]
     Indication: SCHIZOAFFECTIVE DISORDER
     Route: 065
  5. ALIMEMAZINE [Suspect]
     Indication: SCHIZOAFFECTIVE DISORDER
     Route: 065
  6. ZOPICLONE [Suspect]
     Indication: SCHIZOAFFECTIVE DISORDER
     Route: 065
  7. LITHIUM [Concomitant]
     Indication: SCHIZOAFFECTIVE DISORDER
     Route: 065
  8. CHLORPROTHIXENE [Concomitant]
     Indication: SCHIZOAFFECTIVE DISORDER
     Route: 065
  9. LORAZEPAM [Concomitant]
     Indication: SCHIZOAFFECTIVE DISORDER
     Route: 065

REACTIONS (5)
  - Agranulocytosis [Unknown]
  - Drug level increased [Unknown]
  - Neuroleptic malignant syndrome [Unknown]
  - Cerebral ventricle dilatation [Unknown]
  - Drug ineffective [Not Recovered/Not Resolved]
